FAERS Safety Report 5885434-0 (Version None)
Quarter: 2008Q3

REPORT INFORMATION
  Report Type: 
  Country: None (occurrence: None)
  Receive Date: 20080916
  Receipt Date: 20080903
  Transmission Date: 20090109
  Serious: Yes (Hospitalization, Other)
  Sender: FDA-Public Use
  Company Number: CH-ELI_LILLY_AND_COMPANY-CH200809001246

PATIENT
  Sex: Female

DRUGS (15)
  1. CYMBALTA [Suspect]
     Dosage: 120 MG, DAILY (1/D)
     Route: 048
     Dates: start: 20070801, end: 20080602
  2. CYMBALTA [Suspect]
     Dosage: 60 MG, DAILY (1/D)
     Route: 048
     Dates: start: 20080603, end: 20080717
  3. TEMESTA [Concomitant]
     Dosage: 3 MG, DAILY (1/D)
     Route: 048
     Dates: start: 20080526, end: 20080602
  4. TEMESTA [Concomitant]
     Dosage: 1 MG, DAILY (1/D)
     Route: 048
     Dates: start: 20080603, end: 20080609
  5. TEMESTA [Concomitant]
     Dosage: 0.5 MG, DAILY (1/D)
     Route: 048
     Dates: start: 20080610, end: 20080613
  6. SEROQUEL [Concomitant]
     Dosage: 50 MG, DAILY (1/D)
     Route: 048
     Dates: start: 20080528, end: 20080530
  7. SEROQUEL [Concomitant]
     Dosage: 75 MG, DAILY (1/D)
     Route: 048
     Dates: start: 20080531, end: 20080603
  8. SEROQUEL [Concomitant]
     Dosage: 100 MG, DAILY (1/D)
     Route: 048
     Dates: start: 20080604, end: 20080709
  9. SEROQUEL [Concomitant]
     Dosage: 50 MG, DAILY (1/D)
     Route: 048
     Dates: start: 20080709, end: 20080717
  10. VOLTAREN                                /SCH/ [Concomitant]
     Dosage: 100 MG, DAILY (1/D)
     Route: 048
     Dates: start: 20080529, end: 20080602
  11. ABILIFY [Concomitant]
     Dosage: UNK UNK, DAILY (1/D)
     Route: 048
     Dates: start: 20080531, end: 20080602
  12. ABILIFY [Concomitant]
     Dosage: 5 MG, DAILY (1/D)
     Route: 048
     Dates: start: 20080603, end: 20080717
  13. DEROXAT [Concomitant]
     Dosage: 30 MG, DAILY (1/D)
     Route: 048
     Dates: start: 20070801, end: 20080527
  14. DEROXAT [Concomitant]
     Dosage: 20 MG, DAILY (1/D)
     Route: 048
     Dates: start: 20080528, end: 20080602
  15. DEROXAT [Concomitant]
     Dosage: 10 MG, DAILY (1/D)
     Route: 048
     Dates: start: 20080603, end: 20080606

REACTIONS (3)
  - DRUG INTERACTION [None]
  - HOSPITALISATION [None]
  - PANCREATITIS [None]
